FAERS Safety Report 19272310 (Version 1)
Quarter: 2021Q2

REPORT INFORMATION
  Report Type: Report from Study
  Country: JP (occurrence: JP)
  Receive Date: 20210519
  Receipt Date: 20210519
  Transmission Date: 20210717
  Serious: Yes (Hospitalization)
  Sender: FDA-Public Use
  Company Number: JP-JNJFOC-20210531938

PATIENT
  Age: 74 Year
  Sex: Male

DRUGS (16)
  1. FLUTIFORM [Concomitant]
     Active Substance: FLUTICASONE PROPIONATE\FORMOTEROL FUMARATE
     Indication: ASTHMA
     Route: 055
  2. AMLODIPINE [Concomitant]
     Active Substance: AMLODIPINE BESYLATE
     Indication: HYPERTENSION
     Route: 048
     Dates: start: 20180821
  3. PREDONINE [Concomitant]
     Active Substance: PREDNISOLONE
     Indication: PROSTATE CANCER
     Route: 048
     Dates: start: 20210407
  4. TRIMEBUTINE MALEATE [Concomitant]
     Active Substance: TRIMEBUTINE MALEATE
     Indication: CHRONIC GASTRITIS
     Route: 048
     Dates: start: 20190629
  5. EXCELASE [Concomitant]
     Active Substance: PANCRELIPASE
     Indication: CHRONIC GASTRITIS
     Route: 048
     Dates: start: 201912
  6. AZUNOL [Concomitant]
     Indication: LARYNGOPHARYNGITIS
     Route: 048
     Dates: start: 2020
  7. BILANOA [Concomitant]
     Active Substance: BILASTINE
     Indication: RHINITIS ALLERGIC
     Route: 048
     Dates: start: 20200817
  8. STROCAIN [Concomitant]
     Active Substance: OXETHAZAINE
     Indication: CHRONIC GASTRITIS
     Route: 048
     Dates: start: 20201017
  9. DESALEX [Concomitant]
     Active Substance: DESLORATADINE
     Indication: RHINITIS ALLERGIC
     Route: 048
     Dates: start: 202103
  10. CALONAL [Concomitant]
     Active Substance: ACETAMINOPHEN
     Indication: INJECTION SITE REACTION
     Route: 048
     Dates: start: 20210413
  11. ZYTIGA [Suspect]
     Active Substance: ABIRATERONE ACETATE
     Indication: HORMONE-DEPENDENT PROSTATE CANCER
     Route: 048
     Dates: start: 20210413
  12. CAPIVASERTIB. [Suspect]
     Active Substance: CAPIVASERTIB
     Indication: HORMONE-DEPENDENT PROSTATE CANCER
     Route: 065
     Dates: start: 20210413
  13. MUCODYNE [Concomitant]
     Active Substance: CARBOCYSTEINE
     Indication: LARYNGOPHARYNGITIS
     Route: 048
     Dates: start: 20210115
  14. MYSER [Concomitant]
     Indication: INJECTION SITE REACTION
     Route: 061
     Dates: start: 20210413
  15. FEBRICET [Concomitant]
     Indication: GOUT
     Route: 048
     Dates: start: 20180821
  16. REBAMIPIDE [Concomitant]
     Active Substance: REBAMIPIDE
     Indication: CHRONIC GASTRITIS
     Route: 048
     Dates: start: 20190629

REACTIONS (1)
  - Malaise [Recovered/Resolved]

NARRATIVE: CASE EVENT DATE: 20210424
